FAERS Safety Report 6641551-9 (Version None)
Quarter: 2010Q1

REPORT INFORMATION
  Report Type: 
  Country: None (occurrence: None)
  Receive Date: 20100317
  Receipt Date: 20100317
  Transmission Date: 20100710
  Serious: Yes (Other)
  Sender: FDA-Public Use
  Company Number: None

PATIENT
  Age: 50 Year
  Sex: Female
  Weight: 77 kg

DRUGS (7)
  1. CEFEPIME [Suspect]
     Indication: INFECTION
     Dosage: 1 GRAM ONCE IV
     Route: 042
     Dates: start: 20100110
  2. CAPSAICIN [Suspect]
  3. DOCUSATE [Concomitant]
  4. METOPROLOL TARTRATE [Concomitant]
  5. PRAVASTATIN [Concomitant]
  6. PREDNISONE TAB [Concomitant]
  7. TRIAMCINOLONE [Concomitant]

REACTIONS (3)
  - DRUG HYPERSENSITIVITY [None]
  - TACHYCARDIA [None]
  - TACHYPNOEA [None]
